FAERS Safety Report 10194271 (Version 1)
Quarter: 2014Q2

REPORT INFORMATION
  Report Type: Spontaneous
  Country: FR (occurrence: FR)
  Receive Date: 20140526
  Receipt Date: 20140526
  Transmission Date: 20141212
  Serious: Yes (Hospitalization)
  Sender: FDA-Public Use
  Company Number: FR-ROCHE-1406391

PATIENT
  Age: 33 Year
  Sex: Female

DRUGS (3)
  1. ROCEPHINE [Suspect]
     Indication: SALPINGITIS
     Route: 065
     Dates: start: 20140410
  2. DOXYCYCLINE [Suspect]
     Indication: SALPINGITIS
     Route: 065
     Dates: start: 20140410
  3. FLAGYL [Suspect]
     Indication: SALPINGITIS
     Route: 065
     Dates: start: 20140410

REACTIONS (1)
  - Pancreatitis acute [Not Recovered/Not Resolved]
